FAERS Safety Report 10625739 (Version 3)
Quarter: 2015Q2

REPORT INFORMATION
  Report Type: Spontaneous
  Country: IT (occurrence: IT)
  Receive Date: 20141204
  Receipt Date: 20150403
  Transmission Date: 20150821
  Serious: Yes (Life-Threatening)
  Sender: FDA-Public Use
  Company Number: IT-SA-2014SA164031

PATIENT
  Age: 66 Year
  Sex: Male
  Weight: 74 kg

DRUGS (2)
  1. CARDIOASPIRIN [Concomitant]
     Active Substance: ASPIRIN
     Route: 048
  2. PLAVIX [Suspect]
     Active Substance: CLOPIDOGREL BISULFATE
     Indication: ANTICOAGULANT THERAPY
     Route: 048
     Dates: start: 20141113, end: 20141116

REACTIONS (2)
  - Acute myocardial infarction [Unknown]
  - Thrombosis in device [Unknown]

NARRATIVE: CASE EVENT DATE: 20141117
